FAERS Safety Report 6749381-4 (Version None)
Quarter: 2010Q2

REPORT INFORMATION
  Report Type: 
  Country: None (occurrence: None)
  Receive Date: 20100601
  Receipt Date: 20100506
  Transmission Date: 20101027
  Serious: Yes (Other)
  Sender: FDA-Public Use
  Company Number: PHHY2010US30529

PATIENT
  Sex: Female

DRUGS (2)
  1. SANDOSTATIN [Suspect]
     Dosage: 1000 MG, UNK
  2. SANDOSTATIN LAR [Suspect]

REACTIONS (4)
  - DRUG DOSE OMISSION [None]
  - HEADACHE [None]
  - MIGRAINE [None]
  - PAIN [None]
